FAERS Safety Report 6969421-7 (Version None)
Quarter: 2010Q3

REPORT INFORMATION
  Report Type: 
  Country: None (occurrence: None)
  Receive Date: 20100902
  Receipt Date: 20100818
  Transmission Date: 20110219
  Serious: Yes (Hospitalization)
  Sender: FDA-Public Use
  Company Number: 2010-2709

PATIENT
  Age: 70 Year
  Sex: Male
  Weight: 95 kg

DRUGS (4)
  1. LANREOTIDE OR PLACEBO (LANREOTIDE) (BLINDED STUDY DRUG) [Suspect]
     Indication: NEUROENDOCRINE TUMOUR
     Dosage: (120 MG, 1 IN 1 M), SUBCUTANEOUS
     Route: 058
     Dates: start: 20100302
  2. COLCHICINE (COLCHICINE) [Concomitant]
  3. MAGNESIUM (MAGNESIUM) [Concomitant]
  4. OMEPRAZOLE [Concomitant]

REACTIONS (5)
  - ABDOMINAL PAIN [None]
  - BILE DUCT STENOSIS [None]
  - BLOOD BILIRUBIN INCREASED [None]
  - C-REACTIVE PROTEIN INCREASED [None]
  - MALNUTRITION [None]
